FAERS Safety Report 6342358-2 (Version None)
Quarter: 2009Q3

REPORT INFORMATION
  Report Type: 
  Country: None (occurrence: None)
  Receive Date: 20090907
  Receipt Date: 20090828
  Transmission Date: 20100115
  Serious: Yes (Hospitalization, Other)
  Sender: FDA-Public Use
  Company Number: US-ELI_LILLY_AND_COMPANY-US200906004115

PATIENT
  Age: 40 Year
  Sex: Female

DRUGS (5)
  1. ALIMTA [Suspect]
     Indication: NON-SMALL CELL LUNG CANCER
  2. CARBOPLATIN [Concomitant]
     Indication: NON-SMALL CELL LUNG CANCER
  3. AVASTIN [Concomitant]
  4. VITAMIN B-12 [Concomitant]
  5. FOLIC ACID [Concomitant]

REACTIONS (7)
  - DEHYDRATION [None]
  - DERMATITIS [None]
  - DYSPHAGIA [None]
  - HYPOPHAGIA [None]
  - MUCOSAL INFLAMMATION [None]
  - OFF LABEL USE [None]
  - PAIN IN EXTREMITY [None]
